FAERS Safety Report 4604746-1 (Version None)
Quarter: 2005Q2

REPORT INFORMATION
  Report Type: 
  Country: None (occurrence: None)
  Receive Date: 20050217
  Receipt Date: 20041029
  Transmission Date: 20051028
  Serious: No
  Sender: FDA-Public Use
  Company Number: S04-USA-07175-01

PATIENT
  Age: 83 Year
  Sex: Female

DRUGS (9)
  1. NAMENDA [Suspect]
     Indication: DEMENTIA ALZHEIMER'S TYPE
     Dosage: 10 MG BID PO
     Route: 048
     Dates: start: 20040101
  2. NAMENDA [Suspect]
     Indication: DEMENTIA ALZHEIMER'S TYPE
     Dosage: 5 MG QD PO
     Route: 048
     Dates: start: 20040901, end: 20040101
  3. NAMENDA [Suspect]
     Indication: DEMENTIA ALZHEIMER'S TYPE
     Dosage: 10 MG QD PO
     Route: 048
     Dates: start: 20040101, end: 20040101
  4. NAMENDA [Suspect]
     Indication: DEMENTIA ALZHEIMER'S TYPE
     Dosage: 15 MG QD PO
     Route: 048
     Dates: start: 20040101, end: 20040101
  5. REMINYL [Concomitant]
  6. ZOLOFT [Concomitant]
  7. AMBIEN [Concomitant]
  8. DETROL - SLOW RELEASE (TOLTERODINE L-TARTRATE) [Concomitant]
  9. VITAMIN E [Concomitant]

REACTIONS (1)
  - AGGRESSION [None]
